FAERS Safety Report 4993125-3 (Version None)
Quarter: 2006Q1

REPORT INFORMATION
  Report Type: 
  Country: None (occurrence: None)
  Receive Date: 20060313
  Receipt Date: 20060110
  Transmission Date: 20060701
  Serious: No
  Sender: FDA-Public Use
  Company Number: 2006-BP-00270BP

PATIENT
  Age: 68 Year
  Sex: Male

DRUGS (3)
  1. SPIRIVA [Suspect]
     Dosage: SEE TEXT (18 MCG,PRN),IH
  2. ADVAIR (SERETIDE) [Concomitant]
  3. ALBUTEROL SULFATE AUTOHALER [Concomitant]

REACTIONS (1)
  - DYSPNOEA EXACERBATED [None]
